FAERS Safety Report 6466433-7 (Version None)
Quarter: 2009Q4

REPORT INFORMATION
  Report Type: 
  Country: None (occurrence: None)
  Receive Date: 20091202
  Receipt Date: 20081202
  Transmission Date: 20100525
  Serious: No
  Sender: FDA-Public Use
  Company Number: US-AMGEN-KDL318176

PATIENT
  Sex: Male
  Weight: 77.2 kg

DRUGS (2)
  1. ENBREL [Suspect]
     Indication: PSORIASIS
     Route: 058
     Dates: start: 20080321, end: 20081101
  2. LIPITOR [Concomitant]

REACTIONS (1)
  - NEUROPATHY PERIPHERAL [None]
